FAERS Safety Report 23918187 (Version 2)
Quarter: 2024Q3

REPORT INFORMATION
  Report Type: Spontaneous
  Country: CA (occurrence: CA)
  Receive Date: 20240530
  Receipt Date: 20240704
  Transmission Date: 20241017
  Serious: Yes (Hospitalization)
  Sender: CELLTRION
  Company Number: CA-PFIZER INC-202400175115

PATIENT

DRUGS (11)
  1. INFLECTRA [Suspect]
     Active Substance: INFLIXIMAB-DYYB
     Indication: Crohn^s disease
     Dosage: 400 MG, EVERY 4 WEEKS
     Route: 042
     Dates: start: 20240422, end: 20240422
  2. INFLECTRA [Suspect]
     Active Substance: INFLIXIMAB-DYYB
     Dosage: 400 MG, EVERY 4 WEEKS
     Route: 042
     Dates: start: 20240522, end: 20240522
  3. INFLECTRA [Suspect]
     Active Substance: INFLIXIMAB-DYYB
     Dosage: UNK
     Route: 042
  4. INFLECTRA [Suspect]
     Active Substance: INFLIXIMAB-DYYB
     Dosage: 400 MG, EVERY 4 WEEKS
     Route: 042
     Dates: start: 20240619
  5. ENTOCORT [Concomitant]
     Active Substance: BUDESONIDE
     Dosage: 3 MG X 1 MONTH AS SHE HAD TAPERED FROM 9 MG
     Route: 065
  6. FOLIC ACID [Concomitant]
     Active Substance: FOLIC ACID
     Dosage: 1 DF
  7. GLYBURIDE [Concomitant]
     Active Substance: GLYBURIDE
     Dosage: 1 DF
  8. HYDROCHLOROTHIAZIDE [Concomitant]
     Active Substance: HYDROCHLOROTHIAZIDE
     Dosage: 1 DF
  9. METHOTREXATE [Concomitant]
     Active Substance: METHOTREXATE
     Dosage: 0.3 ML WEEKLY ON TUESDAYS(1 DF)
     Route: 065
  10. METFORMIN [Concomitant]
     Active Substance: METFORMIN HYDROCHLORIDE
     Dosage: 1 DF
  11. RAMIPRIL [Concomitant]
     Active Substance: RAMIPRIL
     Dosage: 1 DF

REACTIONS (1)
  - Volvulus [Recovered/Resolved]

NARRATIVE: CASE EVENT DATE: 20240501
